FAERS Safety Report 9757679 (Version 2)
Quarter: 2014Q1

REPORT INFORMATION
  Report Type: Spontaneous
  Country: US (occurrence: US)
  Receive Date: 20131216
  Receipt Date: 20140122
  Transmission Date: 20141002
  Serious: Yes (Other)
  Sender: FDA-Public Use
  Company Number: US-BIOGENIDEC-2013BI118601

PATIENT
  Age: 47 Year
  Sex: Female

DRUGS (12)
  1. TECFIDERA [Suspect]
     Indication: MULTIPLE SCLEROSIS
     Route: 048
     Dates: start: 201307
  2. TECFIDERA [Suspect]
     Indication: MULTIPLE SCLEROSIS
     Route: 048
     Dates: start: 20130702
  3. CYMBALTA [Concomitant]
  4. HUMALOG [Concomitant]
  5. ZYRTEC [Concomitant]
  6. FUROSEMIDE [Concomitant]
  7. LOVASTATIN [Concomitant]
  8. LISINOPRIL [Concomitant]
  9. KLOR-CON [Concomitant]
  10. CARVEDILOL [Concomitant]
  11. ATORVASTATIN [Concomitant]
  12. LANTUS [Concomitant]

REACTIONS (1)
  - Pulmonary hypertension [Not Recovered/Not Resolved]
